FAERS Safety Report 24437340 (Version 2)
Quarter: 2024Q4

REPORT INFORMATION
  Report Type: Report from Study
  Country: DE (occurrence: DE)
  Receive Date: 20241015
  Receipt Date: 20241115
  Transmission Date: 20250114
  Serious: Yes (Other)
  Sender: TEVA
  Company Number: DE-TEVA-VS-3252305

PATIENT
  Sex: Male

DRUGS (5)
  1. LEVETIRACETAM [Suspect]
     Active Substance: LEVETIRACETAM
     Indication: Seizure
     Route: 065
  2. ISRADIPINE [Suspect]
     Active Substance: ISRADIPINE
     Indication: Neurodevelopmental disorder
     Dosage: 0.02 MG/KG/D IN 2 DOSES EVERY 12 HOURS THROUGH A NASOGASTRIC TUBE.
     Route: 050
  3. ISRADIPINE [Suspect]
     Active Substance: ISRADIPINE
     Indication: Neurodevelopmental disorder
     Dosage: GRADUALLY INCREASED TO 0.06 MG/KG/D WITHIN 6 DAYS
     Route: 050
  4. NIFEDIPINE [Suspect]
     Active Substance: NIFEDIPINE
     Indication: Neurodevelopmental disorder
     Route: 048
  5. NIFEDIPINE [Suspect]
     Active Substance: NIFEDIPINE
     Indication: Neurodevelopmental disorder
     Dosage: 0.5 MG/KG/D DIVIDED INTO 2 DOSES
     Route: 048

REACTIONS (4)
  - Hypotension [Unknown]
  - Drug ineffective [Unknown]
  - Tachycardia [Unknown]
  - Drug ineffective for unapproved indication [Unknown]
